FAERS Safety Report 15531221 (Version 1)
Quarter: 2018Q4

REPORT INFORMATION
  Report Type: Spontaneous
  Country: US (occurrence: US)
  Receive Date: 20181019
  Receipt Date: 20181019
  Transmission Date: 20190205
  Serious: Yes (Other)
  Sender: FDA-Public Use
  Company Number: US-ROCHE-2195577

PATIENT
  Sex: Female
  Weight: 99.88 kg

DRUGS (1)
  1. HERCEPTIN [Suspect]
     Active Substance: TRASTUZUMAB
     Indication: HER-2 POSITIVE BREAST CANCER
     Dosage: 12 DOSES TOTAL.
     Route: 065
     Dates: start: 2010, end: 201012

REACTIONS (14)
  - Muscular weakness [Not Recovered/Not Resolved]
  - Intervertebral disc degeneration [Not Recovered/Not Resolved]
  - Intervertebral disc disorder [Recovered/Resolved]
  - Spondylolisthesis [Not Recovered/Not Resolved]
  - Ill-defined disorder [Not Recovered/Not Resolved]
  - Intervertebral disc protrusion [Not Recovered/Not Resolved]
  - Myalgia [Not Recovered/Not Resolved]
  - Nerve compression [Not Recovered/Not Resolved]
  - Back pain [Recovered/Resolved]
  - Arthralgia [Recovered/Resolved]
  - Burning sensation [Not Recovered/Not Resolved]
  - Body height decreased [Unknown]
  - Spinal disorder [Not Recovered/Not Resolved]
  - Intervertebral disc compression [Not Recovered/Not Resolved]

NARRATIVE: CASE EVENT DATE: 2010
